FAERS Safety Report 16484382 (Version 1)
Quarter: 2019Q2

REPORT INFORMATION
  Report Type: Spontaneous
  Country: US (occurrence: US)
  Receive Date: 20190517
  Receipt Date: 20190517
  Transmission Date: 20190711
  Serious: Yes (Hospitalization)
  Sender: FDA-Public Use
  Company Number: None

PATIENT
  Age: 78 Year
  Sex: Female
  Weight: 58.97 kg

DRUGS (9)
  1. EYE VITAMIN [Concomitant]
  2. RAMIPRIL. [Concomitant]
     Active Substance: RAMIPRIL
  3. FISH OIL [Concomitant]
     Active Substance: FISH OIL
  4. CAVEDILOL [Concomitant]
     Active Substance: CARVEDILOL
  5. CALCIUM [Concomitant]
     Active Substance: CALCIUM
  6. COQ10 [Concomitant]
     Active Substance: UBIDECARENONE
  7. MULTIVITAMIN FOR A SLEEP AID [Concomitant]
  8. PROLIA [Suspect]
     Active Substance: DENOSUMAB
     Indication: OSTEOPOROSIS
     Dosage: ?          OTHER FREQUENCY:1 INJECTION 2X YR;?
     Dates: start: 2011, end: 201805
  9. BABY ASPIRIN [Concomitant]
     Active Substance: ASPIRIN

REACTIONS (4)
  - Femur fracture [None]
  - Quality of life decreased [None]
  - Fall [None]
  - Pain in extremity [None]
